FAERS Safety Report 5853786-3 (Version None)
Quarter: 2008Q3

REPORT INFORMATION
  Report Type: 
  Country: None (occurrence: None)
  Receive Date: 20080822
  Receipt Date: 20080814
  Transmission Date: 20090109
  Serious: Yes (Hospitalization)
  Sender: FDA-Public Use
  Company Number: DK-AVENTIS-200815604GDDC

PATIENT
  Age: 84 Year
  Sex: Male

DRUGS (9)
  1. DESMOPRESSIN ACETATE [Suspect]
     Indication: NOCTURIA
     Route: 060
     Dates: start: 20071105, end: 20080529
  2. DESMOPRESSIN ACETATE [Suspect]
     Route: 060
     Dates: start: 20080531, end: 20080612
  3. TERAZOSIN HCL [Concomitant]
     Route: 048
     Dates: start: 20050101
  4. FINASTERIDE [Concomitant]
     Route: 048
     Dates: start: 20050101
  5. SERTRALINE [Concomitant]
     Indication: DEPRESSION
     Route: 048
     Dates: start: 20050101
  6. CHOLESTYRAMINE [Concomitant]
     Route: 048
     Dates: start: 20070801
  7. ASPIRIN [Concomitant]
     Route: 048
     Dates: start: 20000101
  8. THROAT                             /00283001/ [Concomitant]
     Indication: DRY MOUTH
     Route: 048
     Dates: start: 20071110
  9. FERROUS SULFATE TAB [Concomitant]
     Route: 048
     Dates: start: 20080312

REACTIONS (3)
  - ATAXIA [None]
  - BALANCE DISORDER [None]
  - FALL [None]
